FAERS Safety Report 15436766 (Version 4)
Quarter: 2019Q1

REPORT INFORMATION
  Report Type: Report from Study
  Country: US (occurrence: US)
  Receive Date: 20180927
  Receipt Date: 20190107
  Transmission Date: 20190417
  Serious: Yes (Hospitalization, Other)
  Sender: FDA-Public Use
  Company Number: US-ACTELION-A-NJ2018-177408

PATIENT
  Age: 59 Year
  Sex: Male

DRUGS (17)
  1. GABAPENTIN. [Concomitant]
     Active Substance: GABAPENTIN
     Dosage: 300 MG, TID
     Route: 048
  2. LOSARTAN. [Concomitant]
     Active Substance: LOSARTAN
     Dosage: 100 MG, QD
     Route: 048
  3. OPSUMIT [Suspect]
     Active Substance: MACITENTAN
     Indication: PULMONARY HYPERTENSION
     Dosage: 10 MG, QD
     Route: 048
     Dates: start: 20180621
  4. EMTRICITABINE W/TENOFOVIR [Concomitant]
     Active Substance: EMTRICITABINE\TENOFOVIR DISOPROXIL
     Dosage: UNK, QD
     Route: 048
  5. ADEMPAS [Suspect]
     Active Substance: RIOCIGUAT
     Indication: PRODUCT USED FOR UNKNOWN INDICATION
     Dosage: 2 MG, QD
     Route: 048
  6. GABAPENTIN. [Concomitant]
     Active Substance: GABAPENTIN
     Dosage: UNK
  7. ATORVASTATIN [Concomitant]
     Active Substance: ATORVASTATIN
     Dosage: 40 MG, QPM
     Route: 048
  8. OPSUMIT [Suspect]
     Active Substance: MACITENTAN
     Dosage: 10 UNK, UNK
     Route: 048
  9. METFORMIN [Concomitant]
     Active Substance: METFORMIN HYDROCHLORIDE
     Dosage: 750 MG, QD
     Route: 048
  10. ATENOLOL. [Concomitant]
     Active Substance: ATENOLOL
     Dosage: 25 MG, QD
     Route: 048
  11. BUMETANIDE. [Concomitant]
     Active Substance: BUMETANIDE
     Dosage: UNK
  12. ASPIRIN. [Suspect]
     Active Substance: ASPIRIN
     Indication: PRODUCT USED FOR UNKNOWN INDICATION
     Dosage: 81 MG, QD
     Route: 048
  13. ATENOLOL. [Concomitant]
     Active Substance: ATENOLOL
     Dosage: 100 MG, QD
     Route: 048
  14. HYDROCHLOROTHIAZIDE W/LOSARTAN [Concomitant]
     Active Substance: HYDROCHLOROTHIAZIDE\LOSARTAN
     Dosage: UNK, QD
     Route: 048
  15. BRILINTA [Suspect]
     Active Substance: TICAGRELOR
     Indication: PRODUCT USED FOR UNKNOWN INDICATION
     Route: 065
  16. EMTRICITABINE W/TENOFOVIR ALAFENAMIDE [Concomitant]
     Active Substance: EMTRICITABINE\TENOFOVIR ALAFENAMIDE FUMARATE
     Dosage: 200 - 25 MG
  17. ISENTRESS [Concomitant]
     Active Substance: RALTEGRAVIR POTASSIUM
     Dosage: 400 MG, BID
     Route: 048

REACTIONS (25)
  - Pancreatitis [Unknown]
  - Dyspnoea exertional [Recovering/Resolving]
  - Respiratory tract infection [Unknown]
  - Transfusion [Unknown]
  - Chest pain [Unknown]
  - Dialysis [Unknown]
  - Oedema [Unknown]
  - Cardiomegaly [Unknown]
  - Duodenitis [Unknown]
  - Pulmonary hypertension [Unknown]
  - Non-cardiac chest pain [Unknown]
  - Immune thrombocytopenic purpura [Unknown]
  - Packed red blood cell transfusion [Unknown]
  - Dyspnoea [Recovering/Resolving]
  - Alanine aminotransferase increased [Recovered/Resolved]
  - Arteriosclerosis coronary artery [Unknown]
  - Thrombocytopenia [Recovered/Resolved with Sequelae]
  - Abdominal pain [Unknown]
  - Oedema peripheral [Unknown]
  - Bronchitis [Unknown]
  - Platelet count decreased [Recovering/Resolving]
  - Nasal congestion [Unknown]
  - Haemoglobin decreased [Unknown]
  - Anaemia [Unknown]
  - Blood urea abnormal [Recovering/Resolving]

NARRATIVE: CASE EVENT DATE: 20181003
